FAERS Safety Report 11632719 (Version 1)
Quarter: 2015Q4

REPORT INFORMATION
  Report Type: Spontaneous
  Country: US (occurrence: US)
  Receive Date: 20151015
  Receipt Date: 20151015
  Transmission Date: 20160304
  Serious: Yes (Hospitalization)
  Sender: FDA-Public Use
  Company Number: US-SA-2015SA157462

PATIENT
  Age: 47 Year
  Sex: Female

DRUGS (4)
  1. LEMTRADA [Suspect]
     Active Substance: ALEMTUZUMAB
     Indication: MULTIPLE SCLEROSIS
     Route: 065
     Dates: start: 20150928, end: 20150928
  2. SOLU-MEDROL [Concomitant]
     Active Substance: METHYLPREDNISOLONE SODIUM SUCCINATE
  3. ATIVAN [Concomitant]
     Active Substance: LORAZEPAM
     Indication: PREMEDICATION
  4. LEMTRADA [Suspect]
     Active Substance: ALEMTUZUMAB
     Indication: MULTIPLE SCLEROSIS
     Route: 065
     Dates: start: 20150929, end: 20151001

REACTIONS (3)
  - Muscle spasms [Not Recovered/Not Resolved]
  - Trismus [Not Recovered/Not Resolved]
  - Muscle spasms [Not Recovered/Not Resolved]

NARRATIVE: CASE EVENT DATE: 20150928
